FAERS Safety Report 5727399-8 (Version None)
Quarter: 2008Q2

REPORT INFORMATION
  Report Type: 
  Country: None (occurrence: None)
  Receive Date: 20080505
  Receipt Date: 20080417
  Transmission Date: 20081010
  Serious: Yes (Life-Threatening, Hospitalization, Other)
  Sender: FDA-Public Use
  Company Number: CA-BAYER-200711966GDS

PATIENT
  Age: 72 Year
  Sex: Male

DRUGS (1)
  1. ASPIRIN [Suspect]
     Indication: PAIN
     Route: 065

REACTIONS (7)
  - AGITATION [None]
  - ALKALOSIS [None]
  - ANALGESIC DRUG LEVEL INCREASED [None]
  - BLOOD GLUCOSE INCREASED [None]
  - CONFUSIONAL STATE [None]
  - DRUG LEVEL DECREASED [None]
  - HALLUCINATION [None]
